FAERS Safety Report 10763023 (Version 2)
Quarter: 2015Q1

REPORT INFORMATION
  Report Type: Spontaneous
  Country: US (occurrence: US)
  Receive Date: 20150204
  Receipt Date: 20150206
  Transmission Date: 20150721
  Serious: Yes (Hospitalization, Other)
  Sender: FDA-Public Use
  Company Number: US-TEVA-537685USA

PATIENT
  Age: 68 Year
  Sex: Female

DRUGS (1)
  1. COPAXONE [Suspect]
     Active Substance: GLATIRAMER ACETATE
     Indication: MULTIPLE SCLEROSIS
     Dates: start: 20130611

REACTIONS (5)
  - Palpitations [Recovered/Resolved]
  - Injection site pruritus [Unknown]
  - Vascular graft thrombosis [Unknown]
  - Injection site fibrosis [Unknown]
  - Angioplasty [Unknown]

NARRATIVE: CASE EVENT DATE: 201411
